FAERS Safety Report 21698712 (Version 1)
Quarter: 2022Q4

REPORT INFORMATION
  Report Type: Spontaneous
  Country: JP (occurrence: JP)
  Receive Date: 20221208
  Receipt Date: 20221208
  Transmission Date: 20230113
  Serious: Yes (Hospitalization, Other)
  Sender: FDA-Public Use
  Company Number: JP-TEVA-2022-JP-2831082

PATIENT
  Age: 8 Decade
  Sex: Male
  Weight: 52 kg

DRUGS (4)
  1. AZILECT [Suspect]
     Active Substance: RASAGILINE MESYLATE
     Indication: Parkinson^s disease
     Dosage: 1 MILLIGRAM DAILY;
     Route: 048
  2. CARBIDOPA\LEVODOPA [Concomitant]
     Active Substance: CARBIDOPA\LEVODOPA
     Indication: Product used for unknown indication
     Dosage: 600 MILLIGRAM DAILY; UNK, 600 MG/DAY, INCREASED DURING THE 4 YEARS AFTER THE DIAGNOSE
     Route: 065
  3. LEVODOPA [Concomitant]
     Active Substance: LEVODOPA
     Indication: Product used for unknown indication
     Route: 065
  4. LEVODOPA [Concomitant]
     Active Substance: LEVODOPA
     Dosage: THE DOSE OF LEVODOPA WAS REDUCED FROM 6 TO 4 TABLETS/DAY.
     Route: 065

REACTIONS (5)
  - Hallucination [Recovering/Resolving]
  - Fall [Unknown]
  - Femoral neck fracture [Unknown]
  - Illusion [Recovering/Resolving]
  - Dizziness postural [Unknown]
